FAERS Safety Report 17816534 (Version 1)
Quarter: 2020Q2

REPORT INFORMATION
  Report Type: Spontaneous
  Country: US (occurrence: US)
  Receive Date: 20200522
  Receipt Date: 20200522
  Transmission Date: 20200714
  Serious: No
  Sender: FDA-Public Use
  Company Number: US-PFIZER INC-2020201662

PATIENT
  Age: 50 Year
  Sex: Female

DRUGS (1)
  1. XELJANZ XR [Suspect]
     Active Substance: TOFACITINIB CITRATE
     Dosage: 11 MG

REACTIONS (7)
  - Pain [Unknown]
  - Insomnia [Unknown]
  - Fatigue [Unknown]
  - Disturbance in attention [Unknown]
  - Product dose omission [Unknown]
  - Depression [Unknown]
  - Loss of personal independence in daily activities [Unknown]
